FAERS Safety Report 7941119-8 (Version None)
Quarter: 2011Q4

REPORT INFORMATION
  Report Type: 
  Country: None (occurrence: None)
  Receive Date: 20111128
  Receipt Date: 20111114
  Transmission Date: 20120403
  Serious: Yes (Hospitalization)
  Sender: FDA-Public Use
  Company Number: US-BAYER-2011-049645

PATIENT
  Age: 23 Year
  Sex: Female
  Weight: 83.9 kg

DRUGS (6)
  1. YASMIN [Suspect]
     Indication: CONTRACEPTION
     Dosage: UNK
     Dates: start: 20060101, end: 20080101
  2. ZOFRAN [Concomitant]
     Indication: NAUSEA
     Dosage: 1 DF, TID
     Route: 048
  3. PEPCID [Concomitant]
     Dosage: 20 MG, BID
     Route: 048
  4. MAGNESIUM HYDROXIDE TAB [Concomitant]
     Dosage: UNK UNK, PRN
     Route: 048
  5. YAZ [Suspect]
     Indication: CONTRACEPTION
     Dosage: UNK
     Dates: start: 20060101, end: 20080101
  6. OMEPRAZOLE [Concomitant]
     Dosage: 40 MG, BID
     Route: 048

REACTIONS (3)
  - PANCREATITIS [None]
  - PAIN [None]
  - GALLBLADDER DISORDER [None]
